FAERS Safety Report 15097733 (Version 1)
Quarter: 2018Q3

REPORT INFORMATION
  Report Type: Spontaneous
  Country: US (occurrence: US)
  Receive Date: 20180702
  Receipt Date: 20180702
  Transmission Date: 20181010
  Serious: Yes (Other)
  Sender: FDA-Public Use
  Company Number: US-MYLANLABS-2018M1046958

PATIENT
  Age: 35 Year
  Sex: Male

DRUGS (2)
  1. SERTRALINE [Suspect]
     Active Substance: SERTRALINE HYDROCHLORIDE
     Indication: POST-TRAUMATIC STRESS DISORDER
     Dosage: 100 MG, QD, TWO MONTHS BEFORE HIS PRESENTATION, THE DOSE WAS TITRATED
     Route: 065
  2. PRAZOSIN. [Interacting]
     Active Substance: PRAZOSIN
     Indication: POST-TRAUMATIC STRESS DISORDER
     Dosage: 10 MG, QD, PER NIGHT SCHEDULE; TWO MONTHS BEFORE HIS PRESENTATION, THE DOSE WAS TITRATED
     Route: 065

REACTIONS (3)
  - Priapism [Recovered/Resolved]
  - Drug interaction [Recovered/Resolved]
  - Off label use [Recovered/Resolved]
